FAERS Safety Report 4567935-0 (Version None)
Quarter: 2005Q1

REPORT INFORMATION
  Report Type: 
  Country: None (occurrence: None)
  Receive Date: 20050202
  Receipt Date: 20040517
  Transmission Date: 20050727
  Serious: No
  Sender: FDA-Public Use
  Company Number: US-GLAXOSMITHKLINE-A0511123A

PATIENT
  Age: 56 Year
  Sex: Female

DRUGS (3)
  1. NAVELBINE [Suspect]
     Indication: BREAST CANCER
     Dosage: 30MG WEEKLY
     Route: 042
     Dates: start: 20040511, end: 20040511
  2. OXYCODONE HCL [Concomitant]
  3. PROCHLORPERAZINE [Concomitant]

REACTIONS (4)
  - CHEST PAIN [None]
  - CHILLS [None]
  - DIZZINESS [None]
  - INJECTION SITE PAIN [None]
